FAERS Safety Report 7381767-X (Version None)
Quarter: 2011Q1

REPORT INFORMATION
  Report Type: 
  Country: None (occurrence: None)
  Receive Date: 20110329
  Receipt Date: 20101012
  Transmission Date: 20110831
  Serious: Yes (Other)
  Sender: FDA-Public Use
  Company Number: US-BAYER-201022774NA

PATIENT
  Sex: Female
  Weight: 118 kg

DRUGS (13)
  1. OCELLA [Suspect]
  2. PLAQUENIL [Concomitant]
     Indication: RHEUMATOID ARTHRITIS
     Route: 048
  3. SULFASALAZINE [Concomitant]
     Dosage: DAILY DOSE 200 MG
  4. YAZ [Suspect]
     Indication: ORAL CONTRACEPTION
     Route: 048
     Dates: start: 20070901, end: 20070915
  5. YASMIN [Suspect]
     Route: 048
     Dates: start: 20090801, end: 20091001
  6. TERAZOSIN [Concomitant]
     Dates: start: 20071001, end: 20091015
  7. INDOMETHACIN [Concomitant]
     Dosage: 50 MG (DAILY DOSE), BID, ORAL
     Route: 048
     Dates: start: 20071101, end: 20090715
  8. ROBAXIN [Concomitant]
     Indication: MUSCLE RELAXANT THERAPY
     Dosage: 750 MG, PRN
  9. PRILOSEC [Concomitant]
     Route: 048
  10. AMBIEN [Concomitant]
     Dosage: 5 MG, HS
  11. EVOXAC [Concomitant]
     Dosage: 15 MG, BID
  12. YASMIN [Suspect]
     Indication: ORAL CONTRACEPTION
     Route: 048
     Dates: start: 20060901, end: 20080815
  13. CATAPRES [Concomitant]
     Dates: start: 20071001, end: 20090715

REACTIONS (3)
  - ABDOMINAL PAIN [None]
  - CHOLELITHIASIS [None]
  - CHOLECYSTITIS ACUTE [None]
